FAERS Safety Report 23995779 (Version 1)
Quarter: 2024Q2

REPORT INFORMATION
  Report Type: Spontaneous
  Country: US (occurrence: None)
  Receive Date: 20240619
  Receipt Date: 20240619
  Transmission Date: 20240715
  Serious: Yes (Other)
  Sender: FDA-Public Use
  Company Number: None

PATIENT
  Age: 23 Year
  Sex: Male

DRUGS (1)
  1. OZEMPIC [Suspect]
     Active Substance: SEMAGLUTIDE
     Dates: start: 20240611

REACTIONS (11)
  - Nausea [None]
  - Vomiting [None]
  - Abdominal distension [None]
  - Hypophagia [None]
  - Impaired work ability [None]
  - Food aversion [None]
  - Weight decreased [None]
  - Therapy cessation [None]
  - Retching [None]
  - Epistaxis [None]
  - Insomnia [None]

NARRATIVE: CASE EVENT DATE: 20240614
